FAERS Safety Report 6543660-1 (Version None)
Quarter: 2010Q1

REPORT INFORMATION
  Report Type: 
  Country: None (occurrence: None)
  Receive Date: 20100120
  Receipt Date: 20100112
  Transmission Date: 20100710
  Serious: No
  Sender: FDA-Public Use
  Company Number: US-B.I. PHARMACEUTICALS,INC./RIDGEFIELD-2010-BP-00433BP

PATIENT
  Age: 56 Year
  Sex: Female

DRUGS (2)
  1. SPIRIVA [Suspect]
  2. COMBIVENT [Suspect]

REACTIONS (3)
  - DRY MOUTH [None]
  - DYSPHONIA [None]
  - STOMATITIS [None]
